FAERS Safety Report 20406048 (Version 1)
Quarter: 2022Q1

REPORT INFORMATION
  Report Type: Spontaneous
  Country: US (occurrence: US)
  Receive Date: 20220131
  Receipt Date: 20220131
  Transmission Date: 20220423
  Serious: No
  Sender: FDA-Public Use
  Company Number: US-BAUSCH-BL-2022-001955

PATIENT
  Age: 64 Year
  Sex: Female
  Weight: 102.15 kg

DRUGS (1)
  1. ALAWAY [Suspect]
     Active Substance: KETOTIFEN FUMARATE
     Indication: Eye irritation
     Route: 047

REACTIONS (1)
  - Instillation site pain [Recovering/Resolving]

NARRATIVE: CASE EVENT DATE: 20220118
